FAERS Safety Report 16166846 (Version 2)
Quarter: 2019Q3

REPORT INFORMATION
  Report Type: Report from Study
  Country: MX (occurrence: MX)
  Receive Date: 20190408
  Receipt Date: 20190704
  Transmission Date: 20191004
  Serious: Yes (Other)
  Sender: FDA-Public Use
  Company Number: MX-UCBSA-2018045604

PATIENT
  Age: 46 Year
  Sex: Male

DRUGS (2)
  1. CERTOLIZUMAB PEGOL [Suspect]
     Active Substance: CERTOLIZUMAB PEGOL
     Indication: ANKYLOSING SPONDYLITIS
     Dosage: 400 MG, EV 3 MONTHS
     Route: 058
     Dates: start: 201601
  2. CERTOLIZUMAB PEGOL [Suspect]
     Active Substance: CERTOLIZUMAB PEGOL
     Dosage: 400 MG, MONTHLY (QM)
     Route: 058
     Dates: end: 20190128

REACTIONS (8)
  - Discomfort [Unknown]
  - Blood urea increased [Unknown]
  - Nephrotic syndrome [Unknown]
  - Fatigue [Unknown]
  - Headache [Unknown]
  - Off label use [Unknown]
  - Transaminases increased [Unknown]
  - Sialoadenitis [Unknown]

NARRATIVE: CASE EVENT DATE: 201601
